FAERS Safety Report 10177490 (Version 1)
Quarter: 2014Q2

REPORT INFORMATION
  Report Type: Spontaneous
  Country: US (occurrence: US)
  Receive Date: 20140516
  Receipt Date: 20140516
  Transmission Date: 20141212
  Serious: Yes (Other)
  Sender: FDA-Public Use
  Company Number: US-PFIZER INC-2014131056

PATIENT
  Age: 72 Year
  Sex: Male

DRUGS (2)
  1. LINCOMYCIN HCL [Suspect]
     Indication: BRONCHITIS
     Dosage: 500 MG, 4X/DAY (16 GMS)
     Route: 048
  2. BENZATHINE PENICILLIN G [Concomitant]
     Indication: BRONCHITIS
     Route: 030

REACTIONS (5)
  - Colitis ulcerative [Unknown]
  - Psychotic disorder [Unknown]
  - Pyrexia [Unknown]
  - Weight decreased [Unknown]
  - Asthenia [Unknown]
